FAERS Safety Report 8124818-7 (Version None)
Quarter: 2012Q1

REPORT INFORMATION
  Report Type: 
  Country: None (occurrence: None)
  Receive Date: 20120209
  Receipt Date: 20120204
  Transmission Date: 20120608
  Serious: Yes (Other)
  Sender: FDA-Public Use
  Company Number: US-JNJFOC-20111206302

PATIENT
  Age: 48 Year
  Sex: Female
  Weight: 102.51 kg

DRUGS (12)
  1. STELARA [Suspect]
     Indication: PSORIASIS
     Route: 058
     Dates: start: 20100719
  2. PROMETHAZINE [Concomitant]
  3. MOMETASONE FUROATE [Concomitant]
     Route: 055
  4. SUMATRIPTAN [Concomitant]
  5. BACLOFEN [Concomitant]
  6. WARFARIN SODIUM [Concomitant]
  7. ALBUTEROL [Concomitant]
  8. CLONAZEPAM [Concomitant]
  9. METOPROLOL [Concomitant]
  10. POTASSIUM CHLORIDE [Concomitant]
  11. HYDROCHLOROTHIAZIDE [Concomitant]
  12. ACETAMINOPHEN [Concomitant]

REACTIONS (1)
  - CUTANEOUS LUPUS ERYTHEMATOSUS [None]
